FAERS Safety Report 19152158 (Version 1)
Quarter: 2021Q2

REPORT INFORMATION
  Report Type: Spontaneous
  Country: US (occurrence: US)
  Receive Date: 20210416
  Receipt Date: 20210416
  Transmission Date: 20210717
  Serious: Yes (Hospitalization)
  Sender: FDA-Public Use
  Company Number: None

PATIENT
  Sex: Female

DRUGS (1)
  1. XGEVA [Suspect]
     Active Substance: DENOSUMAB
     Indication: NEOPLASM MALIGNANT
     Dosage: OTHER FREQUENCY:EVERY 2 MONTHS ;?
     Route: 058
     Dates: start: 20200415

REACTIONS (3)
  - Fall [None]
  - Hypokinesia [None]
  - Cerebral thrombosis [None]
